FAERS Safety Report 15192495 (Version 1)
Quarter: 2018Q3

REPORT INFORMATION
  Report Type: Report from Study
  Country: AT (occurrence: AT)
  Receive Date: 20180725
  Receipt Date: 20180725
  Transmission Date: 20181010
  Serious: Yes (Other)
  Sender: FDA-Public Use
  Company Number: AT-ROCHE-2083578

PATIENT
  Age: 78 Year
  Sex: Male
  Weight: 85.5 kg

DRUGS (15)
  1. COTELLIC [Suspect]
     Active Substance: COBIMETINIB
     Dosage: 1?0?0
     Route: 048
     Dates: start: 20171207, end: 20171226
  2. THROMBO ASS [Concomitant]
     Active Substance: ASPIRIN
     Indication: PROPHYLAXIS
     Dosage: FOR HEART ATTACK PROPHYLAXIS
     Route: 048
     Dates: start: 2000
  3. CITALOPRAM [Concomitant]
     Active Substance: CITALOPRAM HYDROBROMIDE
     Indication: DEPRESSION
     Route: 048
     Dates: start: 20171205
  4. COTELLIC [Suspect]
     Active Substance: COBIMETINIB
     Indication: MALIGNANT MELANOMA
     Dosage: 1?0?0
     Route: 048
     Dates: start: 20171108, end: 20171114
  5. COTELLIC [Suspect]
     Active Substance: COBIMETINIB
     Dosage: 1?0?0
     Route: 048
     Dates: start: 20180105, end: 20180201
  6. TRITACE [Concomitant]
     Active Substance: RAMIPRIL
     Indication: HYPERTENSION
     Route: 048
     Dates: start: 2000
  7. ZELBORAF [Suspect]
     Active Substance: VEMURAFENIB
     Dosage: 1?0?1
     Route: 048
     Dates: start: 20180105, end: 20180201
  8. BISOPROLOL [Concomitant]
     Active Substance: BISOPROLOL
     Indication: HYPERTENSION
     Route: 048
     Dates: start: 20171229
  9. ZELBORAF [Suspect]
     Active Substance: VEMURAFENIB
     Indication: MALIGNANT MELANOMA
     Dosage: 4?0?4
     Route: 048
     Dates: start: 20171108, end: 20171114
  10. CONCOR [Concomitant]
     Active Substance: BISOPROLOL FUMARATE
     Indication: HYPERTENSION
     Route: 048
     Dates: start: 2000
  11. COTELLIC [Suspect]
     Active Substance: COBIMETINIB
     Dosage: 1?0?0
     Route: 048
     Dates: start: 20171115, end: 20171128
  12. UROSIN (AUSTRIA) [Concomitant]
     Indication: HYPERURICAEMIA
     Route: 048
     Dates: start: 1977
  13. ZELBORAF [Suspect]
     Active Substance: VEMURAFENIB
     Dosage: 2?0?2
     Route: 048
     Dates: start: 20171115, end: 20171128
  14. ZELBORAF [Suspect]
     Active Substance: VEMURAFENIB
     Dosage: 1?0?1
     Route: 048
     Dates: start: 20171207, end: 20171226
  15. FOLSAN [Concomitant]
     Active Substance: FOLIC ACID
     Indication: FOLATE DEFICIENCY
     Route: 048
     Dates: start: 2000

REACTIONS (2)
  - Electrocardiogram QT prolonged [Unknown]
  - Heart rate irregular [Unknown]

NARRATIVE: CASE EVENT DATE: 20171121
